FAERS Safety Report 5496173-2 (Version None)
Quarter: 2007Q4

REPORT INFORMATION
  Report Type: 
  Country: None (occurrence: None)
  Receive Date: 20071023
  Receipt Date: 20071023
  Transmission Date: 20080405
  Serious: Yes (Other)
  Sender: FDA-Public Use
  Company Number: None

PATIENT
  Age: 18 Year
  Sex: Male
  Weight: 80.0145 kg

DRUGS (1)
  1. LARIAM [Suspect]

REACTIONS (18)
  - BLINDNESS [None]
  - CONFUSIONAL STATE [None]
  - DECOMPRESSION SICKNESS [None]
  - DEPRESSION [None]
  - DISTURBANCE IN ATTENTION [None]
  - DREAMY STATE [None]
  - FEELING ABNORMAL [None]
  - HYPOAESTHESIA [None]
  - INSOMNIA [None]
  - MALAISE [None]
  - MEMORY IMPAIRMENT [None]
  - PANIC ATTACK [None]
  - SLEEP DISORDER [None]
  - SOMNOLENCE [None]
  - SUICIDAL IDEATION [None]
  - THINKING ABNORMAL [None]
  - UNEVALUABLE EVENT [None]
  - VERTIGO [None]
